FAERS Safety Report 8250681-X (Version None)
Quarter: 2012Q1

REPORT INFORMATION
  Report Type: 
  Country: None (occurrence: None)
  Receive Date: 20120328
  Receipt Date: 20120316
  Transmission Date: 20120608
  Serious: Yes (Hospitalization)
  Sender: FDA-Public Use
  Company Number: 2012MA003827

PATIENT
  Age: 91 Year
  Sex: Male

DRUGS (8)
  1. MONOKET [Concomitant]
  2. ACETYLCYSTEINE [Concomitant]
  3. FUROSEMIDE [Concomitant]
  4. ASPIRIN [Concomitant]
  5. OMEPRAZOLE [Concomitant]
  6. CAPTOPRIL [Concomitant]
  7. LORAZEPAM [Suspect]
     Indication: INSOMNIA
     Dosage: 1 MG;QD;PO
     Route: 048
     Dates: start: 20111210, end: 20111212
  8. VENORUTON [Concomitant]

REACTIONS (5)
  - SYNCOPE [None]
  - OEDEMA [None]
  - HEAD INJURY [None]
  - DIZZINESS [None]
  - FALL [None]
